FAERS Safety Report 25660537 (Version 1)
Quarter: 2025Q3

REPORT INFORMATION
  Report Type: Spontaneous
  Country: EU (occurrence: EU)
  Receive Date: 20250808
  Receipt Date: 20250808
  Transmission Date: 20251020
  Serious: Yes (Other)
  Sender: AMGEN
  Company Number: EU-AMGEN-NLDSP2025155834

PATIENT

DRUGS (4)
  1. ETANERCEPT [Suspect]
     Active Substance: ETANERCEPT
     Indication: Psoriasis
     Route: 065
  2. ETANERCEPT [Suspect]
     Active Substance: ETANERCEPT
     Indication: Psoriatic arthropathy
  3. ADALIMUMAB [Suspect]
     Active Substance: ADALIMUMAB
     Indication: Psoriasis
     Route: 065
  4. ADALIMUMAB [Suspect]
     Active Substance: ADALIMUMAB
     Indication: Psoriatic arthropathy

REACTIONS (47)
  - Neoplasm malignant [Unknown]
  - Latent tuberculosis [Unknown]
  - Pneumonia [Unknown]
  - Sepsis [Unknown]
  - Angiopathy [Unknown]
  - Lymphatic disorder [Unknown]
  - Cardiac disorder [Unknown]
  - Ear disorder [Unknown]
  - Inner ear disorder [Unknown]
  - Endocrine disorder [Unknown]
  - Eye disorder [Unknown]
  - Nervous system disorder [Unknown]
  - Gastrointestinal disorder [Unknown]
  - Hypersensitivity [Unknown]
  - Oedema [Unknown]
  - Malaise [Unknown]
  - Night sweats [Unknown]
  - Hepatobiliary disease [Unknown]
  - Immune system disorder [Unknown]
  - Influenza like illness [Unknown]
  - Metabolic disorder [Unknown]
  - Musculoskeletal disorder [Unknown]
  - Connective tissue disorder [Unknown]
  - Benign neoplasm [Unknown]
  - Mental disorder [Unknown]
  - Renal disorder [Unknown]
  - Urinary tract disorder [Unknown]
  - Respiratory disorder [Unknown]
  - Mediastinal disorder [Unknown]
  - Skin disorder [Unknown]
  - Surgery [Unknown]
  - Unevaluable event [Unknown]
  - Investigation abnormal [Unknown]
  - Fatigue [Unknown]
  - Blood disorder [Unknown]
  - Decreased appetite [Unknown]
  - Pyrexia [Unknown]
  - Injection site reaction [Unknown]
  - Chest pain [Unknown]
  - Skin infection [Unknown]
  - Localised infection [Unknown]
  - Gastrointestinal infection [Unknown]
  - Eye infection [Unknown]
  - Upper respiratory tract infection [Unknown]
  - Urinary tract infection [Unknown]
  - Abscess [Unknown]
  - Infection [Unknown]
